FAERS Safety Report 6121722-0 (Version None)
Quarter: 2009Q1

REPORT INFORMATION
  Report Type: 
  Country: None (occurrence: None)
  Receive Date: 20090317
  Receipt Date: 20090305
  Transmission Date: 20090719
  Serious: Yes (Hospitalization)
  Sender: FDA-Public Use
  Company Number: JP-PFIZER INC-2008093736

PATIENT

DRUGS (8)
  1. QUINAPRIL HCL [Suspect]
  2. AMLODIPINE [Suspect]
     Route: 048
  3. EUGLUCON [Suspect]
     Route: 048
  4. BASEN [Suspect]
     Route: 048
  5. ASPIRIN [Suspect]
     Route: 048
  6. DIGOXIN [Suspect]
     Route: 048
  7. BUFFERIN [Suspect]
  8. NORSHIN [Suspect]

REACTIONS (1)
  - TOXIC EPIDERMAL NECROLYSIS [None]
